FAERS Safety Report 18852987 (Version 1)
Quarter: 2021Q1

REPORT INFORMATION
  Report Type: Spontaneous
  Country: US (occurrence: US)
  Receive Date: 20210205
  Receipt Date: 20210205
  Transmission Date: 20210420
  Serious: No
  Sender: FDA-Public Use
  Company Number: US-009507513-1904USA013406

PATIENT
  Sex: Male

DRUGS (6)
  1. AMLODIPINE [Concomitant]
     Active Substance: AMLODIPINE BESYLATE
     Indication: BLOOD PRESSURE ABNORMAL
     Dosage: 10 MILLIGRAM
     Dates: start: 2009
  2. ZOCOR [Suspect]
     Active Substance: SIMVASTATIN
     Indication: BLOOD PRESSURE ABNORMAL
     Dosage: 40 MILLIGRAM
     Route: 048
     Dates: start: 2009
  3. ZOSTAVAX [Suspect]
     Active Substance: VARICELLA-ZOSTER VIRUS STRAIN OKA/MERCK LIVE ANTIGEN
     Indication: PROPHYLAXIS
     Route: 058
     Dates: start: 20160804
  4. HYDROCHLOROTHIAZIDE. [Concomitant]
     Active Substance: HYDROCHLOROTHIAZIDE
     Indication: BLOOD PRESSURE ABNORMAL
     Dosage: 25 MILLIGRAM
     Dates: start: 2009
  5. PRINIVIL [Concomitant]
     Active Substance: LISINOPRIL
     Indication: BLOOD PRESSURE ABNORMAL
     Dosage: 40 MILLIGRAM
     Route: 048
     Dates: start: 2009
  6. LABETALOL [Concomitant]
     Active Substance: LABETALOL\LABETALOL HYDROCHLORIDE
     Indication: BLOOD PRESSURE ABNORMAL
     Dosage: 300 MILLIGRAM
     Dates: start: 2009

REACTIONS (13)
  - Palpitations [Unknown]
  - Blood urine present [Unknown]
  - Cerumen impaction [Unknown]
  - Dyspnoea exertional [Unknown]
  - Rhinitis allergic [Unknown]
  - Hyperlipidaemia [Unknown]
  - Rosacea [Unknown]
  - Herpes zoster [Recovered/Resolved]
  - Post herpetic neuralgia [Unknown]
  - Onychomycosis [Unknown]
  - Insomnia [Unknown]
  - Panic attack [Unknown]
  - Product use in unapproved indication [Unknown]

NARRATIVE: CASE EVENT DATE: 2009
